FAERS Safety Report 7549709-1 (Version None)
Quarter: 2011Q2

REPORT INFORMATION
  Report Type: 
  Country: None (occurrence: None)
  Receive Date: 20110615
  Receipt Date: 20110531
  Transmission Date: 20111010
  Serious: Yes (Other)
  Sender: FDA-Public Use
  Company Number: DK-JNJFOC-20101207554

PATIENT
  Age: 32 Year
  Sex: Female

DRUGS (4)
  1. ACETAMINOPHEN [Suspect]
     Route: 065
  2. ACETAMINOPHEN [Suspect]
     Indication: HEADACHE
     Route: 065
  3. TRAMADOL HCL [Suspect]
     Indication: HEADACHE
     Route: 065
  4. MORPHINE [Suspect]
     Indication: HEADACHE
     Route: 065

REACTIONS (4)
  - MIGRAINE [None]
  - DRUG WITHDRAWAL SYNDROME [None]
  - HEADACHE [None]
  - TOXICITY TO VARIOUS AGENTS [None]
